FAERS Safety Report 13849600 (Version 1)
Quarter: 2017Q3

REPORT INFORMATION
  Report Type: Spontaneous
  Country: US (occurrence: US)
  Receive Date: 20170809
  Receipt Date: 20170809
  Transmission Date: 20171127
  Serious: No
  Sender: FDA-Public Use
  Company Number: US-PFIZER INC-2017340835

PATIENT
  Age: 45 Year
  Sex: Female
  Weight: 146.7 kg

DRUGS (2)
  1. CABERGOLINE. [Suspect]
     Active Substance: CABERGOLINE
     Dosage: 2 MG, WEEKLY
  2. CABERGOLINE. [Suspect]
     Active Substance: CABERGOLINE
     Dosage: 4 DF, WEEKLY

REACTIONS (1)
  - Constipation [Unknown]
